FAERS Safety Report 9604581 (Version 1)
Quarter: 2013Q4

REPORT INFORMATION
  Report Type: Spontaneous
  Country: GB (occurrence: GB)
  Receive Date: 20131008
  Receipt Date: 20131008
  Transmission Date: 20140711
  Serious: Yes (Other)
  Sender: FDA-Public Use
  Company Number: DE-ASTRAZENECA-2013SE72653

PATIENT
  Age: 68 Year
  Sex: Male

DRUGS (10)
  1. OMEPRAZOLE [Suspect]
     Route: 048
  2. INDAPAMIDE [Suspect]
     Indication: HYPERTENSION
  3. SALBUTAMOL [Concomitant]
     Route: 055
  4. FLUTICASONE PROPIONATE,SALMETEROL XINAFOATE [Concomitant]
     Route: 055
  5. ROSUVASTATIN [Concomitant]
  6. AMLODIPINE [Concomitant]
  7. LISINOPRIL [Concomitant]
  8. PIOGLITAZONE [Concomitant]
  9. METFORMIN [Concomitant]
  10. GLICLAZIDE [Concomitant]

REACTIONS (2)
  - Hypomagnesaemia [Recovered/Resolved]
  - Hypocalcaemia [Recovered/Resolved]
